FAERS Safety Report 18582089 (Version 1)
Quarter: 2020Q4

REPORT INFORMATION
  Report Type: Spontaneous
  Country: US (occurrence: US)
  Receive Date: 20201204
  Receipt Date: 20201204
  Transmission Date: 20210114
  Serious: No
  Sender: FDA-Public Use
  Company Number: US-BIOMARINAP-US-2020-132790

PATIENT
  Sex: Male
  Weight: 99.27 kg

DRUGS (1)
  1. KUVAN [Suspect]
     Active Substance: SAPROPTERIN DIHYDROCHLORIDE
     Indication: PHENYLKETONURIA
     Dosage: 1900 MILLIGRAM, QD
     Route: 048

REACTIONS (4)
  - Feeling abnormal [Unknown]
  - Colitis [Unknown]
  - Abdominal discomfort [Unknown]
  - Amino acid level increased [Unknown]

NARRATIVE: CASE EVENT DATE: 202006
